FAERS Safety Report 20392774 (Version 2)
Quarter: 2022Q1

REPORT INFORMATION
  Report Type: Spontaneous
  Country: US (occurrence: US)
  Receive Date: 20220128
  Receipt Date: 20220307
  Transmission Date: 20220423
  Serious: No
  Sender: FDA-Public Use
  Company Number: US-TAKEDA-2022TUS006038

PATIENT
  Age: 44 Year
  Sex: Female
  Weight: 108 kg

DRUGS (1)
  1. CUVITRU [Suspect]
     Active Substance: HUMAN IMMUNOGLOBULIN G
     Indication: Immunodeficiency
     Dosage: 10 GRAM, Q2WEEKS
     Route: 058
     Dates: start: 20220110

REACTIONS (5)
  - Fibromyalgia [Unknown]
  - Asthenia [Unknown]
  - Abdominal discomfort [Recovered/Resolved]
  - Abdominal pain [Unknown]
  - Fatigue [Unknown]

NARRATIVE: CASE EVENT DATE: 20220127
